FAERS Safety Report 8958647 (Version 1)
Quarter: 2012Q4

REPORT INFORMATION
  Report Type: Spontaneous
  Country: JP (occurrence: None)
  Receive Date: 20121128
  Receipt Date: 20121128
  Transmission Date: 20130627
  Serious: Yes (Other)
  Sender: FDA-Public Use
  Company Number: FK201203408

PATIENT
  Age: 66 Year
  Sex: Male

DRUGS (7)
  1. AMIODARONE HCL [Suspect]
     Indication: ATRIAL FIBRILLATION
  2. CARVEDILOL [Concomitant]
  3. FUROSEMIDE (FUROSEMIDE) [Concomitant]
  4. SPIRONOLACTONE (SPIRONOLACTONE) [Concomitant]
  5. METHYLDIGOXIN (METLDIGOXIN) [Concomitant]
  6. ASPARTATE POTASSIUM (ASPARTRATE POTASSIUM) [Concomitant]
  7. WARFARIN (WARFARIN) [Concomitant]

REACTIONS (10)
  - Heart alternation [None]
  - Torsade de pointes [None]
  - Drug interaction [None]
  - Right ventricular failure [None]
  - Pulmonary hypertension [None]
  - Atrial fibrillation [None]
  - Bundle branch block right [None]
  - Tricuspid valve incompetence [None]
  - Bradycardia [None]
  - Atrioventricular block complete [None]
